FAERS Safety Report 5989380-3 (Version None)
Quarter: 2008Q4

REPORT INFORMATION
  Report Type: 
  Country: None (occurrence: None)
  Receive Date: 20081205
  Receipt Date: 20081121
  Transmission Date: 20090506
  Serious: Yes (Death)
  Sender: FDA-Public Use
  Company Number: ADE2008-0394

PATIENT
  Age: 34 Week

DRUGS (3)
  1. METFORMIN HCL [Suspect]
     Indication: GESTATIONAL DIABETES
     Dosage: TRANSPLACENTAL
  2. COCAINE [Concomitant]
  3. ALCOHOL [Concomitant]

REACTIONS (2)
  - INTRA-UTERINE DEATH [None]
  - MATERNAL DRUGS AFFECTING FOETUS [None]
